FAERS Safety Report 6559198-1 (Version None)
Quarter: 2010Q1

REPORT INFORMATION
  Report Type: 
  Country: None (occurrence: None)
  Receive Date: 20100129
  Receipt Date: 20091021
  Transmission Date: 20100710
  Serious: No
  Sender: FDA-Public Use
  Company Number: PR-ABBOTT-09P-131-0597414-00

PATIENT
  Sex: Female
  Weight: 46.308 kg

DRUGS (3)
  1. HUMIRA [Suspect]
     Indication: CROHN'S DISEASE
     Route: 058
     Dates: start: 20080501, end: 20090601
  2. HUMIRA [Suspect]
     Route: 058
     Dates: start: 20090601, end: 20090911
  3. LEVOTHROID [Concomitant]
     Indication: THYROID NEOPLASM
     Route: 048
     Dates: start: 20020101

REACTIONS (4)
  - DIARRHOEA [None]
  - DRUG INEFFECTIVE [None]
  - FISTULA [None]
  - WEIGHT CONTROL [None]
